FAERS Safety Report 23052174 (Version 2)
Quarter: 2023Q4

REPORT INFORMATION
  Report Type: Spontaneous
  Country: US (occurrence: US)
  Receive Date: 20231010
  Receipt Date: 20231112
  Transmission Date: 20240109
  Serious: No
  Sender: FDA-Public Use
  Company Number: US-JNJFOC-20231004379

PATIENT
  Age: 44 Year
  Sex: Female
  Weight: 54.48 kg

DRUGS (2)
  1. TREMFYA [Suspect]
     Active Substance: GUSELKUMAB
     Indication: Rheumatoid arthritis
     Route: 058
     Dates: start: 202310
  2. PREDNISONE [Concomitant]
     Active Substance: PREDNISONE
     Indication: Rheumatoid arthritis
     Route: 048

REACTIONS (5)
  - Device issue [Unknown]
  - Product dose omission issue [Unknown]
  - Influenza like illness [Not Recovered/Not Resolved]
  - Device malfunction [Unknown]
  - Product use in unapproved indication [Unknown]
